FAERS Safety Report 6716630-8 (Version None)
Quarter: 2010Q2

REPORT INFORMATION
  Report Type: 
  Country: None (occurrence: None)
  Receive Date: 20100507
  Receipt Date: 20100505
  Transmission Date: 20101027
  Serious: Yes (Death, Hospitalization)
  Sender: FDA-Public Use
  Company Number: FR-ROCHE-701453

PATIENT
  Sex: Male

DRUGS (2)
  1. MIRCERA [Suspect]
     Route: 065
     Dates: start: 20090701, end: 20091201
  2. NEORECORMON [Suspect]
     Route: 065
     Dates: start: 20091201

REACTIONS (2)
  - APLASIA PURE RED CELL [None]
  - DEATH [None]
